FAERS Safety Report 8750653 (Version 2)
Quarter: 2012Q4

REPORT INFORMATION
  Report Type: Spontaneous
  Country: US (occurrence: None)
  Receive Date: 20120813
  Receipt Date: 20120905
  Transmission Date: 20130627
  Serious: Yes (Hospitalization)
  Sender: FDA-Public Use
  Company Number: DSA_58878_2012

PATIENT
  Sex: Male

DRUGS (14)
  1. XENAZINE [Suspect]
     Indication: DYSKINESIA
     Route: 048
     Dates: start: 20120516
  2. VITAMIN E [Concomitant]
  3. FISH OIL [Concomitant]
  4. OMEPRAZOLE [Concomitant]
  5. CITRACAL /00751520/ [Concomitant]
  6. LASIX /00032601/ [Concomitant]
  7. RAMIPRIL [Concomitant]
  8. LUPRON DEPOT [Concomitant]
  9. DIGOXIN [Concomitant]
  10. POTASSIUM CHLORIDE [Concomitant]
  11. EFFIENT [Concomitant]
  12. SIMVASTATIN [Concomitant]
  13. ASPIRIN [Concomitant]
  14. FENOFIBRATE [Concomitant]

REACTIONS (2)
  - Cardiac disorder [None]
  - Heart rate increased [None]
